FAERS Safety Report 15595666 (Version 2)
Quarter: 2018Q4

REPORT INFORMATION
  Report Type: Report from Study
  Country: US (occurrence: US)
  Receive Date: 20181107
  Receipt Date: 20181120
  Transmission Date: 20190205
  Serious: Yes (Hospitalization)
  Sender: FDA-Public Use
  Company Number: US-B.I. PHARMACEUTICALS,INC./RIDGEFIELD-2018-BI-052678

PATIENT
  Age: 90 Year
  Sex: Male

DRUGS (2)
  1. GILOTRIF [Suspect]
     Active Substance: AFATINIB
     Dosage: 1 TABLET EVERY OTHER DAY;  FORM STRENGTH: 40MG;TABLET?  NR?ACTION(S) TAKEN NOT REPORTED
     Route: 048
     Dates: start: 2018
  2. GILOTRIF [Suspect]
     Active Substance: AFATINIB
     Indication: LUNG NEOPLASM MALIGNANT
     Dosage: 1 TABLET DAILY;  FORM STRENGTH: 40 MG; FORMULATION: TABLET?NR?ACTION TAKEN DRUG REDUCED
     Route: 048
     Dates: start: 20181022, end: 2018

REACTIONS (3)
  - Pneumonia [Not Recovered/Not Resolved]
  - Drug interaction [Unknown]
  - Cardiac failure congestive [Not Recovered/Not Resolved]

NARRATIVE: CASE EVENT DATE: 2018
